FAERS Safety Report 6059508-8 (Version None)
Quarter: 2009Q1

REPORT INFORMATION
  Report Type: 
  Country: None (occurrence: None)
  Receive Date: 20090130
  Receipt Date: 20090122
  Transmission Date: 20090719
  Serious: Yes (Death)
  Sender: FDA-Public Use
  Company Number: US-ELI_LILLY_AND_COMPANY-US200901004123

PATIENT
  Age: 52 Year

DRUGS (3)
  1. FLUOXETINE HYDROCHLORIDE [Suspect]
  2. FENTANYL-75 [Concomitant]
  3. GABAPENTIN [Concomitant]

REACTIONS (1)
  - DEATH [None]
